FAERS Safety Report 8941768 (Version 4)
Quarter: 2013Q1

REPORT INFORMATION
  Report Type: Spontaneous
  Country: US (occurrence: US)
  Receive Date: 20121203
  Receipt Date: 20130307
  Transmission Date: 20140127
  Serious: Yes (Hospitalization, Other)
  Sender: FDA-Public Use
  Company Number: US-009507513-1211USA010850

PATIENT
  Sex: Female
  Weight: 90.7 kg

DRUGS (1)
  1. NUVARING [Suspect]
     Indication: MENORRHAGIA
     Dosage: UNK
     Route: 067
     Dates: start: 201008, end: 20101206

REACTIONS (24)
  - Bone lesion excision [Unknown]
  - Deep vein thrombosis [Recovering/Resolving]
  - Cerumen impaction [Unknown]
  - Stress [Unknown]
  - Depression [Unknown]
  - Ostectomy [Unknown]
  - Tendon operation [Unknown]
  - Thrombosis [Unknown]
  - Conjunctivitis [Unknown]
  - Hypogonadism [Unknown]
  - Hypothyroidism [Unknown]
  - Uterine leiomyoma [Unknown]
  - Uterine disorder [Unknown]
  - Hypoglycaemia [Unknown]
  - Hirsutism [Unknown]
  - Endometrial hyperplasia [Unknown]
  - Uterine enlargement [Unknown]
  - Menstruation irregular [Not Recovered/Not Resolved]
  - Uterine dilation and curettage [Unknown]
  - Hysteroscopy [Unknown]
  - Off label use [Unknown]
  - Psoriasis [Unknown]
  - Insulin resistance [Unknown]
  - Hypoglycaemia [Unknown]
